FAERS Safety Report 24558203 (Version 1)
Quarter: 2024Q4

REPORT INFORMATION
  Report Type: Spontaneous
  Country: US (occurrence: US)
  Receive Date: 20241028
  Receipt Date: 20241028
  Transmission Date: 20250115
  Serious: No
  Sender: ELI LILLY AND COMPANY
  Company Number: US-ELI_LILLY_AND_COMPANY-US202410008038

PATIENT
  Age: 64 Year
  Sex: Female

DRUGS (8)
  1. ZEPBOUND [Suspect]
     Active Substance: TIRZEPATIDE
     Indication: Weight control
     Dosage: 2.5 MG, UNKNOWN
     Route: 058
     Dates: start: 20241005
  2. ZEPBOUND [Suspect]
     Active Substance: TIRZEPATIDE
     Indication: Weight control
     Dosage: 2.5 MG, UNKNOWN
     Route: 058
     Dates: start: 20241005
  3. ZEPBOUND [Suspect]
     Active Substance: TIRZEPATIDE
     Indication: Weight control
     Dosage: 2.5 MG, UNKNOWN
     Route: 058
     Dates: start: 20241005
  4. ZEPBOUND [Suspect]
     Active Substance: TIRZEPATIDE
     Indication: Weight control
     Dosage: 2.5 MG, UNKNOWN
     Route: 058
     Dates: start: 20241005
  5. ZEPBOUND [Suspect]
     Active Substance: TIRZEPATIDE
     Indication: Decreased appetite
  6. ZEPBOUND [Suspect]
     Active Substance: TIRZEPATIDE
     Indication: Decreased appetite
  7. ZEPBOUND [Suspect]
     Active Substance: TIRZEPATIDE
     Indication: Decreased appetite
  8. ZEPBOUND [Suspect]
     Active Substance: TIRZEPATIDE
     Indication: Decreased appetite

REACTIONS (3)
  - Flatulence [Unknown]
  - Eructation [Unknown]
  - Abdominal distension [Unknown]
